FAERS Safety Report 6520269-7 (Version None)
Quarter: 2009Q4

REPORT INFORMATION
  Report Type: 
  Country: None (occurrence: None)
  Receive Date: 20091229
  Receipt Date: 20091214
  Transmission Date: 20100525
  Serious: Yes (Other)
  Sender: FDA-Public Use
  Company Number: US-PFIZER INC-2009310365

PATIENT
  Sex: Female
  Weight: 54.422 kg

DRUGS (2)
  1. LYRICA [Suspect]
     Indication: MUSCULOSKELETAL PAIN
     Dosage: 200 MG, 1X/DAY
     Route: 048
     Dates: start: 20090501, end: 20090601
  2. CALCIUM [Concomitant]
     Dosage: UNK

REACTIONS (1)
  - CONTUSION [None]
